FAERS Safety Report 13523474 (Version 1)
Quarter: 2017Q2

REPORT INFORMATION
  Report Type: Spontaneous
  Country: US (occurrence: US)
  Receive Date: 20170508
  Receipt Date: 20170508
  Transmission Date: 20170830
  Serious: No
  Sender: FDA-Public Use
  Company Number: US-VIFOR (INTERNATIONAL) INC.-VIT-2017-04249

PATIENT
  Age: 54 Year
  Sex: Male

DRUGS (4)
  1. VELTASSA [Suspect]
     Active Substance: PATIROMER
     Indication: HYPERKALAEMIA
     Dosage: DISSOLVE 1 PACKET IN 3 OUNCES OF WATER
     Route: 048
     Dates: start: 201610
  2. METOPROLOL. [Concomitant]
     Active Substance: METOPROLOL
  3. PREDNISONE. [Concomitant]
     Active Substance: PREDNISONE
  4. CICLOSPORIN [Concomitant]
     Active Substance: CYCLOSPORINE

REACTIONS (2)
  - Pain in extremity [Unknown]
  - Muscle spasms [Unknown]

NARRATIVE: CASE EVENT DATE: 201703
